FAERS Safety Report 20186110 (Version 1)
Quarter: 2021Q4

REPORT INFORMATION
  Report Type: Other
  Country: VN (occurrence: None)
  Receive Date: 20211215
  Receipt Date: 20211215
  Transmission Date: 20220303
  Serious: Yes (Other)
  Sender: FDA-Public Use
  Company Number: VN-ROCHE-2973339

PATIENT

DRUGS (1)
  1. CAPECITABINE [Suspect]
     Active Substance: CAPECITABINE
     Indication: Rectal cancer
     Route: 048

REACTIONS (17)
  - Rectal ulcer [Unknown]
  - Anal ulcer [Unknown]
  - Hepatotoxicity [Unknown]
  - Anaemia [Unknown]
  - Leukopenia [Unknown]
  - Radiation skin injury [Unknown]
  - Cystitis [Unknown]
  - Skin ulcer [Unknown]
  - Vaginal infection [Unknown]
  - Nausea [Unknown]
  - Diarrhoea [Unknown]
  - Anal inflammation [Unknown]
  - Nephropathy toxic [Unknown]
  - Neutrophil count decreased [Unknown]
  - Palmar-plantar erythrodysaesthesia syndrome [Unknown]
  - Proctitis [Unknown]
  - Off label use [Unknown]
